FAERS Safety Report 17698321 (Version 3)
Quarter: 2020Q2

REPORT INFORMATION
  Report Type: Spontaneous
  Country: US (occurrence: US)
  Receive Date: 20200423
  Receipt Date: 20200610
  Transmission Date: 20200714
  Serious: No
  Sender: FDA-Public Use
  Company Number: US-PFIZER INC-2019455210

PATIENT
  Age: 84 Year
  Sex: Female
  Weight: 61.22 kg

DRUGS (2)
  1. CELEBREX [Suspect]
     Active Substance: CELECOXIB
     Indication: ARTHRITIS
     Dosage: 200 MG, 2X/DAY
     Route: 048
  2. CELEBREX [Suspect]
     Active Substance: CELECOXIB
     Indication: INTERVERTEBRAL DISC DEGENERATION
     Dosage: 200 MG, 1 CAPSULE QD (ONCE A DAY)-BID (TWICE A DAY)
     Route: 048

REACTIONS (3)
  - Off label use [Unknown]
  - Arthropathy [Unknown]
  - Product use in unapproved indication [Unknown]
